FAERS Safety Report 16720710 (Version 2)
Quarter: 2019Q3

REPORT INFORMATION
  Report Type: Spontaneous
  Country: US (occurrence: US)
  Receive Date: 20190820
  Receipt Date: 20190822
  Transmission Date: 20191005
  Serious: No
  Sender: FDA-Public Use
  Company Number: US-BIOGEN-2019BI00775928

PATIENT
  Sex: Female

DRUGS (1)
  1. PLEGRIDY [Suspect]
     Active Substance: PEGINTERFERON BETA-1A
     Indication: MULTIPLE SCLEROSIS
     Route: 065
     Dates: start: 20190802

REACTIONS (11)
  - Injection site warmth [Unknown]
  - Aphasia [Unknown]
  - Fall [Recovered/Resolved]
  - Thinking abnormal [Unknown]
  - Injection site erythema [Unknown]
  - Muscular weakness [Unknown]
  - Injection site discolouration [Unknown]
  - Pyrexia [Unknown]
  - Motor dysfunction [Unknown]
  - Asthenia [Unknown]
  - Fatigue [Unknown]
